FAERS Safety Report 6143698-2 (Version None)
Quarter: 2009Q2

REPORT INFORMATION
  Report Type: 
  Country: None (occurrence: None)
  Receive Date: 20090403
  Receipt Date: 20090331
  Transmission Date: 20091009
  Serious: Yes (Hospitalization)
  Sender: FDA-Public Use
  Company Number: MY-BAYER-200916726GPV

PATIENT
  Age: 65 Year
  Sex: Female
  Weight: 44 kg

DRUGS (12)
  1. ULTRAVIST 150 [Suspect]
     Indication: ARTERIOGRAM CORONARY
     Dosage: 2MLS/SEC MANUAL INJECTION
     Route: 013
     Dates: start: 20090316, end: 20090316
  2. ISORDIL [Concomitant]
     Dosage: TOTAL DAILY DOSE: 30 MG
  3. NAC DIAGNOSTIC REAGENT [Concomitant]
     Dosage: TOTAL DAILY DOSE: 2.4 G
  4. PLAVIX [Concomitant]
  5. ASPIRIN [Concomitant]
  6. PERINDOPRIL ERBUMINE [Concomitant]
  7. METOPROLOL [Concomitant]
  8. SLOW-K [Concomitant]
  9. HUMULIN N [Concomitant]
  10. LASIX [Concomitant]
     Dosage: TOTAL DAILY DOSE: 120 MG
  11. GLICLAZIDE [Concomitant]
     Dosage: TOTAL DAILY DOSE: 160 MG
  12. LIGNOCAINE 2% [Concomitant]

REACTIONS (2)
  - COUGH [None]
  - PULMONARY OEDEMA [None]
